FAERS Safety Report 15222703 (Version 1)
Quarter: 2018Q3

REPORT INFORMATION
  Report Type: Report from Study
  Country: MX (occurrence: MX)
  Receive Date: 20180731
  Receipt Date: 20180731
  Transmission Date: 20181010
  Serious: Yes (Other)
  Sender: FDA-Public Use
  Company Number: PHHY2018MX057917

PATIENT
  Sex: Female

DRUGS (1)
  1. CO?DIOVAN [Suspect]
     Active Substance: HYDROCHLOROTHIAZIDE\VALSARTAN
     Indication: PRODUCT USED FOR UNKNOWN INDICATION
     Dosage: 1 DF, (HYDROCHLOROTHIAZIDE 12.5 MG, VALSARTAN 160 MG),UNK
     Route: 065

REACTIONS (3)
  - Hypertension [Unknown]
  - Drug intolerance [Unknown]
  - Thrombosis [Unknown]
